FAERS Safety Report 18450845 (Version 1)
Quarter: 2020Q4

REPORT INFORMATION
  Report Type: Spontaneous
  Country: US (occurrence: US)
  Receive Date: 20201102
  Receipt Date: 20201102
  Transmission Date: 20210114
  Serious: Yes (Hospitalization, Other)
  Sender: FDA-Public Use
  Company Number: US-BRISTOL-MYERS SQUIBB COMPANY-BMS-2020-090461

PATIENT
  Age: 88 Year
  Sex: Male
  Weight: 50.8 kg

DRUGS (1)
  1. ELIQUIS [Suspect]
     Active Substance: APIXABAN
     Indication: EMBOLISM VENOUS
     Dosage: NOT AVAILABLE
     Dates: start: 2016, end: 20200927

REACTIONS (3)
  - Cardiac failure congestive [Unknown]
  - General physical health deterioration [Unknown]
  - Road traffic accident [Unknown]

NARRATIVE: CASE EVENT DATE: 2016
